FAERS Safety Report 17419920 (Version 1)
Quarter: 2020Q1

REPORT INFORMATION
  Report Type: Spontaneous
  Country: DE (occurrence: DE)
  Receive Date: 20200214
  Receipt Date: 20200214
  Transmission Date: 20200409
  Serious: Yes (Other)
  Sender: FDA-Public Use
  Company Number: DE-TEVA-2020-DE-1183269

PATIENT
  Age: 6 Decade
  Sex: Female
  Weight: 80 kg

DRUGS (3)
  1. PENICILLIN 4 MEGA [PENICILLIN V] [Suspect]
     Active Substance: PENICILLIN V
     Dosage: INTAKE FOR 5 DAYS COMBINED WITH INTRAVENOUS CLINDAMYCIN
     Route: 065
  2. CLINDAMYCIN-RATIOPHARM 600 MG/4 ML INJEKTIONSL?SUNG [Suspect]
     Active Substance: CLINDAMYCIN
     Dosage: 2400 MILLIGRAM DAILY;
     Route: 042
     Dates: end: 20200123
  3. CLINDAMYCIN. [Suspect]
     Active Substance: CLINDAMYCIN
     Route: 048
     Dates: start: 20191110, end: 2019

REACTIONS (8)
  - Taste disorder [Unknown]
  - Vomiting [Unknown]
  - Visual impairment [Unknown]
  - Diarrhoea [Unknown]
  - Atrioventricular block complete [Recovered/Resolved]
  - Nausea [Unknown]
  - Bradycardia [Unknown]
  - Tongue discolouration [Recovered/Resolved]

NARRATIVE: CASE EVENT DATE: 20200121
